FAERS Safety Report 7587185-3 (Version None)
Quarter: 2011Q3

REPORT INFORMATION
  Report Type: 
  Country: None (occurrence: None)
  Receive Date: 20110701
  Receipt Date: 20110620
  Transmission Date: 20111222
  Serious: Yes (Hospitalization, Other)
  Sender: FDA-Public Use
  Company Number: PHBS1998AU26727

PATIENT
  Sex: Female
  Weight: 68 kg

DRUGS (7)
  1. CLOZAPINE [Suspect]
     Dosage: 12.5 MG, UNK
  2. CLOZAPINE [Suspect]
     Indication: SCHIZOPHRENIA
     Dosage: 12.5 MG, QD
     Route: 048
     Dates: start: 19960412
  3. DEPO-PROVERA [Concomitant]
  4. CLOZAPINE [Suspect]
     Dates: start: 20110413
  5. CLOZAPINE [Suspect]
     Dates: start: 19980101
  6. CLOZAPINE [Suspect]
     Dosage: 200 MG, BID
     Route: 048
     Dates: end: 19960101
  7. CLOZAPINE [Suspect]
     Dosage: 200 MG
     Dates: start: 20110101

REACTIONS (14)
  - DIABETES MELLITUS [None]
  - BLOOD GLUCOSE INCREASED [None]
  - NEUTROPENIA [None]
  - AGGRESSION [None]
  - URINARY INCONTINENCE [None]
  - GLUCOSE URINE PRESENT [None]
  - HEADACHE [None]
  - HYPERGLYCAEMIA [None]
  - TACHYCARDIA [None]
  - EOSINOPHIL COUNT INCREASED [None]
  - SOMNOLENCE [None]
  - ELECTROCARDIOGRAM QT PROLONGED [None]
  - VOMITING [None]
  - ASTHENIA [None]
